FAERS Safety Report 5655037-1 (Version None)
Quarter: 2008Q1

REPORT INFORMATION
  Report Type: 
  Country: None (occurrence: None)
  Receive Date: 20080307
  Receipt Date: 20071024
  Transmission Date: 20080703
  Serious: No
  Sender: FDA-Public Use
  Company Number: A0690596A

PATIENT
  Age: 87 Year
  Sex: Female
  Weight: 54.5 kg

DRUGS (1)
  1. REQUIP [Suspect]
     Route: 048

REACTIONS (6)
  - CRYING [None]
  - DRUG INEFFECTIVE [None]
  - FRUSTRATION [None]
  - INSOMNIA [None]
  - MIDDLE INSOMNIA [None]
  - MUSCLE SPASMS [None]
